FAERS Safety Report 4826768-8 (Version None)
Quarter: 2005Q4

REPORT INFORMATION
  Report Type: 
  Country: None (occurrence: None)
  Receive Date: 20051014
  Receipt Date: 20050621
  Transmission Date: 20060501
  Serious: No
  Sender: FDA-Public Use
  Company Number: 2005SP001516

PATIENT
  Age: 63 Year
  Sex: Female
  Weight: 58.9676 kg

DRUGS (4)
  1. LUNESTA [Suspect]
     Indication: INSOMNIA
     Dosage: 3 MG;1X;ORAL, 3 MG;1X;ORAL
     Route: 048
     Dates: start: 20050616, end: 20050616
  2. LUNESTA [Suspect]
     Indication: INSOMNIA
     Dosage: 3 MG;1X;ORAL, 3 MG;1X;ORAL
     Route: 048
     Dates: start: 20050619, end: 20050619
  3. ALPRAZOLAM [Concomitant]
  4. DILTIAZEM HCL [Concomitant]

REACTIONS (3)
  - DYSGEUSIA [None]
  - INSOMNIA [None]
  - THROAT IRRITATION [None]
